FAERS Safety Report 8047866-4 (Version None)
Quarter: 2012Q1

REPORT INFORMATION
  Report Type: 
  Country: None (occurrence: None)
  Receive Date: 20120116
  Receipt Date: 20120104
  Transmission Date: 20120608
  Serious: Yes (Death)
  Sender: FDA-Public Use
  Company Number: US-COVIDIEN/TYCO HEALTHCARE/MALLINCKRODT-T201200038

PATIENT
  Age: 43 Year
  Sex: Male

DRUGS (3)
  1. ALPRAZOLAM [Suspect]
  2. FENTANYL-100 [Suspect]
  3. OXYCODONE HCL [Suspect]

REACTIONS (2)
  - DRUG ABUSE [None]
  - CARDIO-RESPIRATORY ARREST [None]
